FAERS Safety Report 5673535-1 (Version None)
Quarter: 2008Q1

REPORT INFORMATION
  Report Type: 
  Country: None (occurrence: None)
  Receive Date: 20080319
  Receipt Date: 20080318
  Transmission Date: 20080703
  Serious: Yes (Other)
  Sender: FDA-Public Use
  Company Number: TR-BOEHRINGER INGELHEIM GMBH, GERMANY-2008-BP-04063RO

PATIENT
  Age: 60 Year
  Sex: Female

DRUGS (2)
  1. DICLOFENAC SODIUM [Suspect]
     Indication: BACK PAIN
     Route: 030
  2. MUPIROCIN [Concomitant]
     Indication: EMBOLIA CUTIS MEDICAMENTOSA
     Route: 061

REACTIONS (2)
  - EMBOLIA CUTIS MEDICAMENTOSA [None]
  - INJECTION SITE PAIN [None]
